FAERS Safety Report 8350218-0 (Version None)
Quarter: 2012Q2

REPORT INFORMATION
  Report Type: 
  Country: None (occurrence: None)
  Receive Date: 20120510
  Receipt Date: 20120508
  Transmission Date: 20120825
  Serious: Yes (Hospitalization, Other)
  Sender: FDA-Public Use
  Company Number: US-ABBOTT-12P-163-0918059-00

PATIENT
  Age: 60 Year
  Sex: Female

DRUGS (18)
  1. JANUVIA [Concomitant]
     Indication: DIABETES MELLITUS
     Dosage: DAILY
  2. HUMIRA [Suspect]
     Indication: PSORIASIS
     Dates: start: 20100301
  3. BUPROPION HCL [Concomitant]
     Indication: DEPRESSION
     Dosage: DAILY
  4. LIPITOR [Concomitant]
     Indication: BLOOD CHOLESTEROL INCREASED
     Dosage: DAILY
  5. CYMBALTA [Concomitant]
     Indication: DEPRESSION
     Dosage: DAILY
  6. TIZANIDINE [Concomitant]
     Indication: MUSCLE RELAXANT THERAPY
  7. NEXIUM [Concomitant]
     Indication: GASTROOESOPHAGEAL REFLUX DISEASE
  8. LYRICA [Concomitant]
     Indication: ANXIOLYTIC THERAPY
  9. FAMOTIDINE [Concomitant]
     Indication: GASTROOESOPHAGEAL REFLUX DISEASE
  10. ABILIFY [Concomitant]
     Indication: DEPRESSION
     Dosage: DAILY
  11. NOVOLIN R [Concomitant]
     Indication: DIABETES MELLITUS
  12. GEMFIBROZIL [Concomitant]
     Indication: BLOOD CHOLESTEROL INCREASED
  13. HYDROCODONE BITARTRATE [Concomitant]
     Indication: PAIN
     Dosage: 10/325MG, EVERY 4 HOURS
  14. VITAMIN B-12 [Concomitant]
     Indication: PRODUCT USED FOR UNKNOWN INDICATION
     Dosage: DAILY
  15. LIDODERM [Concomitant]
     Indication: ARTHRALGIA
     Dosage: PATCH
  16. LIDODERM [Concomitant]
     Indication: BACK PAIN
  17. LANTUS [Concomitant]
     Indication: DIABETES MELLITUS
  18. ALLERGY [Concomitant]
     Indication: PRODUCT USED FOR UNKNOWN INDICATION
     Dosage: OVER THE COUNTER PILL DAILY

REACTIONS (5)
  - FOOD POISONING [None]
  - FALL [None]
  - JOINT INJURY [None]
  - FEELING ABNORMAL [None]
  - PSORIASIS [None]
